FAERS Safety Report 17629115 (Version 1)
Quarter: 2020Q2

REPORT INFORMATION
  Report Type: Spontaneous
  Country: US (occurrence: US)
  Receive Date: 20200406
  Receipt Date: 20200406
  Transmission Date: 20200713
  Serious: No
  Sender: FDA-Public Use
  Company Number: US-ALLERGAN-1945051US

PATIENT
  Sex: Female
  Weight: 49.44 kg

DRUGS (1)
  1. MESALAZINE - BP [Suspect]
     Active Substance: MESALAMINE
     Indication: COLITIS
     Dosage: UNK
     Route: 065

REACTIONS (2)
  - Colitis [Unknown]
  - Diarrhoea [Unknown]
